FAERS Safety Report 6663676-4 (Version None)
Quarter: 2010Q2

REPORT INFORMATION
  Report Type: 
  Country: None (occurrence: None)
  Receive Date: 20100401
  Receipt Date: 20100301
  Transmission Date: 20101027
  Serious: No
  Sender: FDA-Public Use
  Company Number: US-BAYER-201012609BCC

PATIENT
  Age: 82 Year
  Sex: Female
  Weight: 68 kg

DRUGS (6)
  1. ALEVE (CAPLET) [Suspect]
     Indication: HEADACHE
     Dosage: AS USED: 440/220 MG  UNIT DOSE: 220 MG
     Route: 048
     Dates: start: 20100224, end: 20100225
  2. ALEVE (CAPLET) [Suspect]
     Dosage: AS USED: 440/200 MG  UNIT DOSE: 220 MG
     Route: 048
     Dates: start: 20100227
  3. ALEVE (CAPLET) [Suspect]
     Dosage: UNIT DOSE: 220 MG
     Route: 048
     Dates: start: 20100226, end: 20100226
  4. ALEVE (CAPLET) [Suspect]
     Dosage: UNIT DOSE: 220 MG
     Route: 048
     Dates: start: 20100223, end: 20100223
  5. ASPIRIN [Concomitant]
     Route: 065
  6. VERAPAMIL [Concomitant]
     Route: 065

REACTIONS (3)
  - ARTHRALGIA [None]
  - HEADACHE [None]
  - SWOLLEN TONGUE [None]
